FAERS Safety Report 7672789-X (Version None)
Quarter: 2011Q3

REPORT INFORMATION
  Report Type: 
  Country: None (occurrence: None)
  Receive Date: 20110809
  Receipt Date: 20110804
  Transmission Date: 20111222
  Serious: Yes (Death, Hospitalization, Other)
  Sender: FDA-Public Use
  Company Number: US-AMGEN-QUU431561

PATIENT
  Age: 86 Year
  Sex: Male
  Weight: 80 kg

DRUGS (11)
  1. MULTI-VITAMINS [Concomitant]
  2. NPLATE [Suspect]
     Indication: IDIOPATHIC THROMBOCYTOPENIC PURPURA
     Dosage: 4 A?G/KG, UNK
     Route: 058
     Dates: start: 20090209, end: 20110414
  3. DAPSONE [Concomitant]
     Dosage: 100 MG, QD
  4. FUROSEMIDE [Concomitant]
     Dosage: 20 MG, BID
  5. PREDNISONE [Concomitant]
     Dosage: 60 MG, QD
  6. RITUXIMAB [Concomitant]
     Dosage: UNK UNK, UNK
     Dates: start: 20090207, end: 20090227
  7. AMLODIPINE BESYLATE [Concomitant]
     Dosage: 2.5 MG, QD
  8. OMEPRAZOLE [Concomitant]
     Dosage: 20 MG, QD
     Route: 048
     Dates: start: 20090101
  9. DANAZOL [Concomitant]
     Dosage: 200 MG, BID
     Route: 048
     Dates: start: 20090101
  10. NITROGLYCERIN [Concomitant]
     Dosage: UNK UNK, PRN
  11. ALBUTEROL [Concomitant]
     Dosage: UNK UNK, PRN

REACTIONS (24)
  - BLOOD PHOSPHORUS DECREASED [None]
  - LUNG DISORDER [None]
  - PULMONARY INFARCTION [None]
  - SMALL INTESTINAL OBSTRUCTION [None]
  - PALPITATIONS [None]
  - CHOLELITHIASIS [None]
  - ATRIOVENTRICULAR BLOCK COMPLETE [None]
  - CANDIDIASIS [None]
  - PAIN [None]
  - IDIOPATHIC THROMBOCYTOPENIC PURPURA [None]
  - DEEP VEIN THROMBOSIS [None]
  - HYPOVOLAEMIA [None]
  - SKIN EXFOLIATION [None]
  - DYSPNOEA [None]
  - ABDOMINAL HERNIA [None]
  - PLEURAL FIBROSIS [None]
  - THROMBOCYTOSIS [None]
  - INCREASED TENDENCY TO BRUISE [None]
  - PULMONARY EMBOLISM [None]
  - OEDEMA PERIPHERAL [None]
  - LACERATION [None]
  - INTERVERTEBRAL DISC DEGENERATION [None]
  - PLATELET COUNT DECREASED [None]
  - PAIN IN EXTREMITY [None]
